FAERS Safety Report 8512970 (Version 4)
Quarter: 2012Q4

REPORT INFORMATION
  Report Type: 
  Country: CA (occurrence: CA)
  Receive Date: 20120413
  Receipt Date: 20121001
  Transmission Date: 20130627
  Serious: Yes (Other)
  Sender: FDA-Public Use
  Company Number: CA-ROCHE-1058218

PATIENT
  Age: 38 Year
  Sex: Female

DRUGS (4)
  1. OMALIZUMAB [Suspect]
     Indication: ASTHMA
     Route: 058
     Dates: start: 20111103
  2. ADVAIR [Concomitant]
  3. QVAR [Concomitant]
  4. VENTOLIN [Concomitant]

REACTIONS (6)
  - Urinary tract infection [Unknown]
  - Abdominal pain upper [Unknown]
  - Blood urine present [Unknown]
  - Ovarian cyst [Unknown]
  - Gastrointestinal disorder [Unknown]
  - Hypersensitivity [Unknown]
